FAERS Safety Report 4811109-2 (Version None)
Quarter: 2005Q4

REPORT INFORMATION
  Report Type: 
  Country: None (occurrence: None)
  Receive Date: 20051025
  Receipt Date: 20051006
  Transmission Date: 20060501
  Serious: Yes (Death)
  Sender: FDA-Public Use
  Company Number: WAES 0510USA04874

PATIENT
  Sex: Female

DRUGS (1)
  1. VIOXX [Suspect]
     Dosage: PO
     Route: 048

REACTIONS (2)
  - INJURY [None]
  - NERVOUS SYSTEM DISORDER [None]
